FAERS Safety Report 11282733 (Version 1)
Quarter: 2015Q3

REPORT INFORMATION
  Report Type: Spontaneous
  Country: CH (occurrence: CH)
  Receive Date: 20150720
  Receipt Date: 20150720
  Transmission Date: 20151125
  Serious: Yes (Death, Hospitalization)
  Sender: FDA-Public Use
  Company Number: CH-JNJFOC-20150705317

PATIENT
  Age: 82 Year
  Sex: Female
  Weight: 60 kg

DRUGS (5)
  1. INFLAMAC (DICLOFENAC SODIUM) [Suspect]
     Active Substance: DICLOFENAC SODIUM
     Indication: PROCEDURAL PAIN
     Route: 048
     Dates: start: 20150531, end: 20150607
  2. DAFALGAN [Suspect]
     Active Substance: ACETAMINOPHEN
     Indication: PROCEDURAL PAIN
     Route: 048
     Dates: start: 20150601, end: 20150615
  3. METHOTREXATE [Suspect]
     Active Substance: METHOTREXATE
     Indication: RHEUMATOID ARTHRITIS
     Route: 048
     Dates: end: 20150615
  4. HALDOL [Suspect]
     Active Substance: HALOPERIDOL
     Indication: DELIRIUM
     Route: 048
     Dates: start: 20150604, end: 20150607
  5. NOVALGIN [Suspect]
     Active Substance: METAMIZOLE SODIUM
     Indication: PROCEDURAL PAIN
     Route: 048
     Dates: start: 20150601, end: 20150615

REACTIONS (8)
  - Pancytopenia [Fatal]
  - Haemorrhagic anaemia [Fatal]
  - Bone marrow failure [Fatal]
  - Pneumonia [Fatal]
  - Infection [Fatal]
  - Gastrointestinal haemorrhage [Unknown]
  - Product use issue [Unknown]
  - Agranulocytosis [Fatal]

NARRATIVE: CASE EVENT DATE: 201506
